FAERS Safety Report 5698907-0 (Version None)
Quarter: 2008Q2

REPORT INFORMATION
  Report Type: 
  Country: None (occurrence: None)
  Receive Date: 20080408
  Receipt Date: 20060802
  Transmission Date: 20081010
  Serious: No
  Sender: FDA-Public Use
  Company Number: US-BAYER-US-2006-021535

PATIENT
  Age: 14 Year
  Sex: Female

DRUGS (1)
  1. ULTRAVIST (PHARMACY BULK) [Suspect]
     Indication: COMPUTERISED TOMOGRAM
     Dosage: UNIT DOSE: 85 ML
     Route: 042
     Dates: start: 20060707, end: 20060707

REACTIONS (2)
  - DYSPNOEA [None]
  - NECK PAIN [None]
